FAERS Safety Report 22254174 (Version 1)
Quarter: 2023Q2

REPORT INFORMATION
  Report Type: Spontaneous
  Country: US (occurrence: None)
  Receive Date: 20230425
  Receipt Date: 20230425
  Transmission Date: 20230721
  Serious: No
  Sender: FDA-Public Use
  Company Number: None

PATIENT
  Sex: Female
  Weight: 65.25 kg

DRUGS (4)
  1. AMPHETAMINE ASPARTATE\DEXTROAMPHETAMINE SACCHARATE [Suspect]
     Active Substance: AMPHETAMINE ASPARTATE\DEXTROAMPHETAMINE SACCHARATE
     Indication: Attention deficit hyperactivity disorder
     Dosage: 1 CAPSULE DAILY ORAL
     Route: 048
  2. Dextroamp-amphet ER 15mg [Concomitant]
  3. Buspirone HCL 7.5mg [Concomitant]
  4. BUPROPION [Concomitant]
     Active Substance: BUPROPION

REACTIONS (3)
  - Therapy interrupted [None]
  - Drug ineffective [None]
  - Therapeutic product effect variable [None]
